FAERS Safety Report 19651372 (Version 1)
Quarter: 2021Q3

REPORT INFORMATION
  Report Type: Spontaneous
  Country: NL (occurrence: NL)
  Receive Date: 20210803
  Receipt Date: 20210803
  Transmission Date: 20211014
  Serious: Yes (Other)
  Sender: FDA-Public Use
  Company Number: NL-MYLANLABS-2021M1046714

PATIENT
  Age: 76 Year
  Sex: Female
  Weight: 71 kg

DRUGS (1)
  1. ENALAPRIL [Suspect]
     Active Substance: ENALAPRIL
     Indication: HYPERTENSION
     Dosage: 1 DOSAGE FORM (TABLET, 20 MG (MILLIGRAM))
     Dates: start: 2000, end: 20210506

REACTIONS (3)
  - Swollen tongue [Recovered/Resolved]
  - Angioedema [Recovered/Resolved]
  - Pharyngeal swelling [Recovered/Resolved]

NARRATIVE: CASE EVENT DATE: 20210505
